FAERS Safety Report 6614430-0 (Version None)
Quarter: 2010Q1

REPORT INFORMATION
  Report Type: 
  Country: None (occurrence: None)
  Receive Date: 20100304
  Receipt Date: 20100219
  Transmission Date: 20100710
  Serious: Yes (Hospitalization, Other)
  Sender: FDA-Public Use
  Company Number: US-ELI_LILLY_AND_COMPANY-US201002006532

PATIENT
  Sex: Female

DRUGS (17)
  1. FORTEO [Suspect]
     Indication: OSTEOPOROSIS
     Dosage: 20 UG, DAILY (1/D)
     Dates: start: 20080801
  2. PROTONIX [Concomitant]
  3. METFORMIN HYDROCHLORIDE [Concomitant]
  4. LEXAPRO [Concomitant]
  5. DIGOXIN [Concomitant]
  6. CARDIZEM [Concomitant]
  7. SYNTHROID [Concomitant]
  8. HEPARIN [Concomitant]
  9. PREDNISONE [Concomitant]
  10. CELEXA [Concomitant]
  11. IRON [Concomitant]
  12. MULTI-VITAMIN [Concomitant]
  13. VITAMIN C [Concomitant]
  14. ZINC [Concomitant]
  15. RISPERDAL [Concomitant]
  16. PRAVACHOL [Concomitant]
  17. INSULIN ASPART [Concomitant]

REACTIONS (3)
  - DRUG ADMINISTRATION ERROR [None]
  - HOSPITALISATION [None]
  - MALAISE [None]
